FAERS Safety Report 8591765-6 (Version None)
Quarter: 2012Q3

REPORT INFORMATION
  Report Type: 
  Country: None (occurrence: None)
  Receive Date: 20120814
  Receipt Date: 20120809
  Transmission Date: 20120928
  Serious: Yes (Hospitalization, Other)
  Sender: FDA-Public Use
  Company Number: PHHY2012VE013804

PATIENT
  Sex: Female

DRUGS (13)
  1. METHOTREXATE [Concomitant]
  2. DIAMICRON [Concomitant]
     Indication: DIABETES MELLITUS
     Dosage: 60 MG, UNK
  3. GLUCOSAMINE [Concomitant]
     Indication: ARTHRITIS
     Dosage: 1 DF, UNK
  4. PLAVIX [Concomitant]
  5. FOLIC ACID [Concomitant]
     Dosage: 1 DF, UNK
     Route: 048
  6. ZOLEDRONOC ACID [Suspect]
     Indication: OSTEOPOROSIS
     Route: 042
     Dates: start: 20090101
  7. ATACAND [Concomitant]
     Indication: HYPERTENSION
  8. CARVEDILOL [Concomitant]
     Indication: HYPERTENSION
  9. VITAMIN TAB [Concomitant]
     Dosage: 1 DF, UNK
     Route: 048
  10. ZOLEDRONOC ACID [Suspect]
     Route: 042
     Dates: start: 20100101
  11. LIPITOR [Concomitant]
     Indication: HYPERLIPIDAEMIA
  12. ZOLEDRONOC ACID [Suspect]
     Route: 042
     Dates: start: 20110101
  13. CALCORT [Concomitant]
     Indication: ANAEMIA
     Dates: start: 20090101

REACTIONS (9)
  - LIMB DISCOMFORT [None]
  - VISION BLURRED [None]
  - EYE DISORDER [None]
  - CEREBRAL THROMBOSIS [None]
  - DIZZINESS [None]
  - FALL [None]
  - HYPERGLYCAEMIA [None]
  - HEAD INJURY [None]
  - SWELLING [None]
